FAERS Safety Report 6920725-3 (Version None)
Quarter: 2010Q3

REPORT INFORMATION
  Report Type: 
  Country: None (occurrence: None)
  Receive Date: 20100812
  Receipt Date: 20100803
  Transmission Date: 20110219
  Serious: Yes (Other)
  Sender: FDA-Public Use
  Company Number: US-JNJFOC-20100703818

PATIENT
  Sex: Female
  Weight: 95.71 kg

DRUGS (3)
  1. REMICADE [Suspect]
     Indication: RHEUMATOID ARTHRITIS
     Route: 042
  2. ATENOLOL [Concomitant]
     Indication: BLOOD PRESSURE
     Route: 048
  3. NOVOLOG [Concomitant]
     Indication: DIABETES MELLITUS
     Dosage: 50 UNITS/ SOLUTION/ 26 UNITS IN MORNING AND 24 UNITS IN THE EVENING
     Route: 058

REACTIONS (7)
  - ANXIETY [None]
  - BRONCHITIS [None]
  - DEAFNESS BILATERAL [None]
  - EAR INFECTION [None]
  - HEART RATE INCREASED [None]
  - POST-TRAUMATIC STRESS DISORDER [None]
  - SOCIAL PHOBIA [None]
